FAERS Safety Report 6409776-5 (Version None)
Quarter: 2009Q4

REPORT INFORMATION
  Report Type: 
  Country: None (occurrence: None)
  Receive Date: 20091021
  Receipt Date: 20091021
  Transmission Date: 20100525
  Serious: Yes (Disabling)
  Sender: FDA-Public Use
  Company Number: None

PATIENT
  Sex: Male
  Weight: 67.1324 kg

DRUGS (2)
  1. ZOMETA [Suspect]
     Indication: OSTEOPOROSIS
     Dosage: LESS THAN 5 - SLOWLY ONCE A YEAR IV IN ARM
     Route: 042
     Dates: start: 20090914
  2. FOSAMAX [Concomitant]

REACTIONS (9)
  - ARTHRALGIA [None]
  - ARTHROPATHY [None]
  - BODY TEMPERATURE INCREASED [None]
  - BONE PAIN [None]
  - DRUG INEFFECTIVE [None]
  - HAEMARTHROSIS [None]
  - JOINT SWELLING [None]
  - MUSCULOSKELETAL DISORDER [None]
  - MYALGIA [None]
